FAERS Safety Report 13469176 (Version 9)
Quarter: 2019Q1

REPORT INFORMATION
  Report Type: Spontaneous
  Country: US (occurrence: US)
  Receive Date: 20170421
  Receipt Date: 20190204
  Transmission Date: 20190417
  Serious: Yes (Hospitalization)
  Sender: FDA-Public Use
  Company Number: US-ACTELION-A-US2017-152830

PATIENT
  Age: 29 Year
  Sex: Male
  Weight: 115.65 kg

DRUGS (8)
  1. VELETRI [Suspect]
     Active Substance: EPOPROSTENOL
     Dosage: 12.5 NG/KG, PER MIN
     Route: 042
     Dates: start: 20170918
  2. VELETRI [Suspect]
     Active Substance: EPOPROSTENOL
     Dosage: 14.2 NG/KG, PER MIN
     Route: 042
     Dates: start: 20170918
  3. ADCIRCA [Concomitant]
     Active Substance: TADALAFIL
  4. ASA [Concomitant]
     Active Substance: ASPIRIN
     Dosage: 81 MG, QPM
     Dates: start: 20150320
  5. VELETRI [Suspect]
     Active Substance: EPOPROSTENOL
     Dosage: 12 NG/KG, PER MIN
     Route: 042
  6. TORSEMIDE. [Concomitant]
     Active Substance: TORSEMIDE
     Dosage: 20 MG, QD
     Dates: start: 20171027
  7. VELETRI [Suspect]
     Active Substance: EPOPROSTENOL
     Indication: PULMONARY HYPERTENSION
     Dosage: 12.7 NG/KG, PER MIN
     Route: 042
     Dates: start: 20170918
  8. SPIRONOLACTONE. [Concomitant]
     Active Substance: SPIRONOLACTONE
     Dosage: 50 MG, QPM
     Dates: start: 20180222

REACTIONS (13)
  - Cough [Unknown]
  - Device dislocation [Unknown]
  - Application site rash [Unknown]
  - Device related infection [Unknown]
  - Pyrexia [Recovered/Resolved]
  - Productive cough [Unknown]
  - Complication associated with device [Recovered/Resolved]
  - Device occlusion [Recovered/Resolved]
  - Condition aggravated [Unknown]
  - Malaise [Recovered/Resolved]
  - Catheter management [Unknown]
  - Catheter site infection [Unknown]
  - Asthenia [Recovered/Resolved]

NARRATIVE: CASE EVENT DATE: 20180523
